FAERS Safety Report 25195996 (Version 2)
Quarter: 2025Q4

REPORT INFORMATION
  Report Type: Spontaneous
  Country: JP (occurrence: JP)
  Receive Date: 20250415
  Receipt Date: 20251222
  Transmission Date: 20260118
  Serious: Yes (Hospitalization, Other)
  Sender: GLAXOSMITHKLINE
  Company Number: JP-GSKJP-JP2025JPN042025AA

PATIENT
  Age: 53 Year
  Sex: Female
  Weight: 60.6 kg

DRUGS (4)
  1. NUCALA [Suspect]
     Active Substance: MEPOLIZUMAB
     Indication: Asthma
     Dosage: UNK, Q4W
  2. BUDESONIDE\FORMOTEROL [Concomitant]
     Active Substance: BUDESONIDE\FORMOTEROL
     Indication: Asthma
     Dosage: BID, 4 INHALATIONS PER DOSE
  3. PREDNISOLONE [Concomitant]
     Active Substance: PREDNISOLONE
     Indication: Eosinophilic pneumonia
     Dosage: 30 MG, QD (EQUIVALENT TO 0.5 MG/KG), THEREAFTER, TAPERED OFF
  4. PREDNISOLONE [Concomitant]
     Active Substance: PREDNISOLONE
     Dosage: 4 MG, QD

REACTIONS (6)
  - Eosinophilic pneumonia [Recovered/Resolved]
  - Asthma [Recovered/Resolved]
  - Cough [Recovered/Resolved]
  - Pyrexia [Unknown]
  - Wheezing [Unknown]
  - Therapeutic response decreased [Unknown]
